FAERS Safety Report 16693596 (Version 1)
Quarter: 2019Q3

REPORT INFORMATION
  Report Type: Spontaneous
  Country: ES (occurrence: ES)
  Receive Date: 20190812
  Receipt Date: 20190812
  Transmission Date: 20191004
  Serious: Yes (Other)
  Sender: FDA-Public Use
  Company Number: ES-PURDUE-GBR-2019-0069004

PATIENT
  Age: 66 Year
  Sex: Male

DRUGS (6)
  1. BUPRENORPHINE. [Suspect]
     Active Substance: BUPRENORPHINE
     Indication: BONE PAIN
     Dosage: UNK
     Route: 065
     Dates: start: 201701
  2. BUPRENORPHINE. [Suspect]
     Active Substance: BUPRENORPHINE
     Dosage: UNK
     Route: 065
     Dates: start: 201602
  3. IBUPROFEN. [Suspect]
     Active Substance: IBUPROFEN
     Indication: BONE PAIN
     Dosage: 1200 MG, DAILY (600 MG EVERY 12 HOUR(S))
     Route: 065
     Dates: start: 201701
  4. NALOXONE W/OXYCODONE [Suspect]
     Active Substance: NALOXONE HYDROCHLORIDE\OXYCODONE HYDROCHLORIDE
     Indication: BONE PAIN
     Dosage: 30 MG, DAILY (15 MILLIGRAM, Q12H(10+5 MG))
     Route: 065
     Dates: start: 201701
  5. PREGABALIN. [Suspect]
     Active Substance: PREGABALIN
     Indication: BONE PAIN
     Dosage: 300 MG, DAILY (150 MG EVERY 12 HOUR(S))
     Route: 065
     Dates: start: 201701
  6. MORPHINE SULFATE. [Suspect]
     Active Substance: MORPHINE SULFATE
     Indication: BREAKTHROUGH PAIN
     Dosage: 10 MG, UNK ( (4-5 MORPHINE RESCUES), UNKJ)
     Route: 065
     Dates: start: 201701

REACTIONS (4)
  - Disorientation [Recovering/Resolving]
  - Somnolence [Recovering/Resolving]
  - Neurotoxicity [Recovering/Resolving]
  - Off label use [Unknown]

NARRATIVE: CASE EVENT DATE: 201701
